FAERS Safety Report 23624948 (Version 1)
Quarter: 2024Q1

REPORT INFORMATION
  Report Type: Spontaneous
  Country: US (occurrence: US)
  Receive Date: 20240313
  Receipt Date: 20240313
  Transmission Date: 20240410
  Serious: Yes (Other)
  Sender: FDA-Public Use
  Company Number: US-AMGEN-USASP2024047793

PATIENT

DRUGS (7)
  1. BEVACIZUMAB [Suspect]
     Active Substance: BEVACIZUMAB
     Indication: Colorectal cancer metastatic
     Dosage: UNK (8 CYCLES)
     Route: 065
  2. BEVACIZUMAB [Suspect]
     Active Substance: BEVACIZUMAB
     Dosage: UNK (7 CYCLES)
     Route: 065
  3. BEVACIZUMAB [Suspect]
     Active Substance: BEVACIZUMAB
     Dosage: UNK (2 CYCLES)
     Route: 065
  4. FLUOROURACIL\LEUCOVORIN\OXALIPLATIN [Suspect]
     Active Substance: FLUOROURACIL\LEUCOVORIN\OXALIPLATIN
     Indication: Colorectal cancer metastatic
     Dosage: UNK (8 CYCLES)
     Route: 065
  5. RILUZOLE [Suspect]
     Active Substance: RILUZOLE
     Indication: Colorectal cancer metastatic
     Dosage: 50 MILLIGRAM, BID
     Route: 065
  6. RILUZOLE [Suspect]
     Active Substance: RILUZOLE
     Dosage: 100 MILLIGRAM, BID
     Route: 065
  7. RILUZOLE [Suspect]
     Active Substance: RILUZOLE
     Dosage: 50 MILLIGRAM, QD
     Route: 065

REACTIONS (6)
  - Colorectal cancer metastatic [Unknown]
  - Lymphopenia [Unknown]
  - Neutropenia [Unknown]
  - Abdominal pain [Unknown]
  - Therapy partial responder [Unknown]
  - Therapeutic product effect incomplete [Unknown]
